FAERS Safety Report 8962820 (Version 3)
Quarter: 2013Q1

REPORT INFORMATION
  Report Type: Spontaneous
  Country: US (occurrence: US)
  Receive Date: 20121214
  Receipt Date: 20130104
  Transmission Date: 20140127
  Serious: Yes (Death, Life-Threatening, Hospitalization, Disabling, Other)
  Sender: FDA-Public Use
  Company Number: US-009507513-1212USA004882

PATIENT
  Age: 50 Year
  Sex: Male

DRUGS (1)
  1. INTEGRILIN [Suspect]
     Route: 042

REACTIONS (4)
  - Death [Fatal]
  - Acute coronary syndrome [Unknown]
  - Peripheral artery aneurysm [Unknown]
  - Aneurysmectomy [Unknown]
